FAERS Safety Report 24059777 (Version 3)
Quarter: 2024Q3

REPORT INFORMATION
  Report Type: Report from Study
  Country: US (occurrence: None)
  Receive Date: 20240708
  Receipt Date: 20240904
  Transmission Date: 20241017
  Serious: Yes (Hospitalization, Other)
  Sender: ASTRAZENECA
  Company Number: 2024A154226

PATIENT
  Age: 49 Year
  Sex: Female
  Weight: 79.8 kg

DRUGS (7)
  1. TEZSPIRE [Suspect]
     Active Substance: TEZEPELUMAB-EKKO
  2. AIRSUPRA [Suspect]
     Active Substance: ALBUTEROL SULFATE\BUDESONIDE
     Route: 055
  3. AIRSUPRA [Suspect]
     Active Substance: ALBUTEROL SULFATE\BUDESONIDE
     Route: 055
  4. OMEPRAZOLE [Suspect]
     Active Substance: OMEPRAZOLE
     Route: 048
  5. OMEPRAZOLE [Suspect]
     Active Substance: OMEPRAZOLE
     Route: 048
  6. BREZTRI [Suspect]
     Active Substance: BUDESONIDE\FORMOTEROL\GLYCOPYRROLATE
     Route: 055
  7. BREZTRI [Suspect]
     Active Substance: BUDESONIDE\FORMOTEROL\GLYCOPYRROLATE
     Route: 055

REACTIONS (24)
  - Ileus [Unknown]
  - Umbilical hernia [Unknown]
  - Wheezing [Unknown]
  - Chest pain [Unknown]
  - Nausea [Unknown]
  - Diarrhoea [Unknown]
  - Pain [Unknown]
  - Pyrexia [Unknown]
  - Cough [Unknown]
  - Insomnia [Unknown]
  - Back pain [Unknown]
  - Dyspnoea [Unknown]
  - Hypersensitivity [Unknown]
  - Nasal congestion [Unknown]
  - Flank pain [Unknown]
  - Asthma [Unknown]
  - Overweight [Unknown]
  - Gastrooesophageal reflux disease [Unknown]
  - Rhinitis allergic [Unknown]
  - Skin warm [Unknown]
  - Dyspnoea [Unknown]
  - Drug ineffective [Unknown]
  - Burning sensation [Unknown]
  - Dry skin [Unknown]
